FAERS Safety Report 4373786-2 (Version None)
Quarter: 2004Q2

REPORT INFORMATION
  Report Type: 
  Country: None (occurrence: None)
  Receive Date: 20040608
  Receipt Date: 20040608
  Transmission Date: 20050107
  Serious: Yes (Other)
  Sender: FDA-Public Use
  Company Number: None

PATIENT
  Sex: Female
  Weight: 99.3377 kg

DRUGS (2)
  1. DARVOCET-N 100 [Suspect]
     Dosage: ONE -TWO  Q4-6 HOURS PO PRN
     Route: 048
     Dates: start: 20040302
  2. LORTAB [Suspect]
     Dosage: ONE -TWO  Q 4-6 HOURS PM
     Dates: start: 20030808

REACTIONS (3)
  - PHARMACEUTICAL PRODUCT COMPLAINT [None]
  - PRURITUS [None]
  - RASH [None]
